FAERS Safety Report 8189488 (Version 2)
Quarter: 2012Q4

REPORT INFORMATION
  Report Type: 
  Country: US (occurrence: US)
  Receive Date: 20111019
  Receipt Date: 20121121
  Transmission Date: 20130627
  Serious: No
  Sender: FDA-Public Use
  Company Number: US-BRISTOL-MYERS SQUIBB COMPANY-15553555

PATIENT
  Age: 83 Year
  Sex: Female

DRUGS (1)
  1. AVALIDE [Suspect]
     Dosage: 1DF = Avalide 150/12.5 mg

REACTIONS (2)
  - Blood pressure increased [Unknown]
  - Headache [Unknown]
